FAERS Safety Report 6405410-9 (Version None)
Quarter: 2009Q4

REPORT INFORMATION
  Report Type: 
  Country: None (occurrence: None)
  Receive Date: 20091019
  Receipt Date: 20091007
  Transmission Date: 20100525
  Serious: Yes (Hospitalization)
  Sender: FDA-Public Use
  Company Number: JP-PFIZER INC-2009276912

PATIENT
  Age: 75 Year

DRUGS (1)
  1. DETRUSITOL [Suspect]
     Indication: HYPERTONIC BLADDER
     Dosage: 8 MG, 1X/DAY
     Route: 048
     Dates: start: 20090701

REACTIONS (3)
  - MEDICATION ERROR [None]
  - PNEUMONIA [None]
  - URINARY TRACT INFECTION [None]
